FAERS Safety Report 9394471 (Version 1)
Quarter: 2013Q3

REPORT INFORMATION
  Report Type: Spontaneous
  Country: FR (occurrence: FR)
  Receive Date: 20130711
  Receipt Date: 20130711
  Transmission Date: 20140515
  Serious: Yes (Hospitalization)
  Sender: FDA-Public Use
  Company Number: FR-BAYER-2013-080932

PATIENT
  Age: 49 Year
  Sex: Female

DRUGS (14)
  1. CIFLOX [Suspect]
     Indication: OSTEITIS
     Dosage: 500 MG, QD
     Route: 048
     Dates: start: 20130503, end: 201305
  2. AXEPIM [Suspect]
     Indication: OSTEITIS
     Dosage: 1 G, QD
     Route: 048
     Dates: start: 20130503, end: 20130506
  3. AXEPIM [Suspect]
     Indication: OSTEITIS
     Dosage: 500 MG, UNK
     Dates: start: 20130507
  4. INEXIUM [Concomitant]
  5. KAYEXALATE [Concomitant]
  6. LASILIX [Concomitant]
  7. LYRICA [Concomitant]
  8. MIMPARA [CINACALCET] [Concomitant]
  9. PLAVIX [Concomitant]
  10. TAHOR [Concomitant]
  11. TEMERIT [Concomitant]
  12. CELLCEPT [Concomitant]
  13. OXYCONTIN [Concomitant]
  14. OXYNORM [Concomitant]

REACTIONS (3)
  - Encephalopathy [Recovered/Resolved]
  - Confusional state [Recovered/Resolved]
  - Speech disorder [Recovered/Resolved]
